FAERS Safety Report 5225081-7 (Version None)
Quarter: 2007Q1

REPORT INFORMATION
  Report Type: 
  Country: None (occurrence: None)
  Receive Date: 20070129
  Receipt Date: 20070112
  Transmission Date: 20070707
  Serious: Yes (Hospitalization)
  Sender: FDA-Public Use
  Company Number: T06-GER-03572-01

PATIENT
  Age: 44 Year
  Sex: Male
  Weight: 80 kg

DRUGS (5)
  1. CIPRALEX (ESCITALOPRAM) [Suspect]
     Indication: DEPRESSION
     Dosage: 10 MG QD PO
     Route: 048
     Dates: start: 20060701, end: 20060816
  2. CIPRALEX (ESCITALOPRAM) [Suspect]
     Indication: DEPRESSION
     Dosage: 10 MG QD PO
     Route: 048
     Dates: start: 20060831
  3. CIPRALEX (ESCITALOPRAM) [Suspect]
     Indication: DEPRESSION
     Dosage: 5 MG QD PO
     Route: 048
     Dates: start: 20060413, end: 20060630
  4. CEDUR RETARD (BEZAFIBRATE) [Suspect]
     Indication: DRUG USE FOR UNKNOWN INDICATION
  5. CITALOPRAM HYDROBROMIDE [Concomitant]

REACTIONS (3)
  - CEREBRAL INFARCTION [None]
  - CORONARY ARTERY OCCLUSION [None]
  - MYOCARDIAL INFARCTION [None]
